FAERS Safety Report 14339661 (Version 1)
Quarter: 2017Q4

REPORT INFORMATION
  Report Type: Spontaneous
  Country: US (occurrence: US)
  Receive Date: 20171230
  Receipt Date: 20171230
  Transmission Date: 20180321
  Serious: Yes (Hospitalization, Other)
  Sender: FDA-Public Use
  Company Number: US-JNJFOC-20171230781

PATIENT
  Sex: Male

DRUGS (2)
  1. SUDAFED [Suspect]
     Active Substance: PSEUDOEPHEDRINE HYDROCHLORIDE
     Indication: SINUSITIS
     Route: 064
  2. SUDAFED [Suspect]
     Active Substance: PSEUDOEPHEDRINE HYDROCHLORIDE
     Route: 064

REACTIONS (2)
  - Wolff-Parkinson-White syndrome [Unknown]
  - Foetal exposure during pregnancy [Unknown]
